FAERS Safety Report 4289021-X (Version None)
Quarter: 2004Q1

REPORT INFORMATION
  Report Type: 
  Country: None (occurrence: None)
  Receive Date: 20040206
  Receipt Date: 20040121
  Transmission Date: 20041129
  Serious: Yes (Death)
  Sender: FDA-Public Use
  Company Number: US012374

PATIENT
  Age: 63 Year
  Sex: Female
  Weight: 59.8748 kg

DRUGS (4)
  1. ACTIQ [Suspect]
     Dosage: 8000 UG ONCE BUCCAL
     Route: 002
     Dates: start: 20021201, end: 20021201
  2. OXYCONTIN [Suspect]
     Dates: start: 20011201, end: 20021201
  3. VICODIN [Concomitant]
  4. CLONAZEPAM [Concomitant]

REACTIONS (3)
  - DRUG TOXICITY [None]
  - MULTIPLE DRUG OVERDOSE [None]
  - RESPIRATORY ARREST [None]
